FAERS Safety Report 19256103 (Version 48)
Quarter: 2023Q4

REPORT INFORMATION
  Report Type: Spontaneous
  Country: CA (occurrence: CA)
  Receive Date: 20210514
  Receipt Date: 20231026
  Transmission Date: 20240110
  Serious: Yes (Hospitalization, Other)
  Sender: FDA-Public Use
  Company Number: CA-CELLTRION INC.-2021CA006325

PATIENT

DRUGS (32)
  1. INFLECTRA [Suspect]
     Active Substance: INFLIXIMAB-DYYB
     Indication: Crohn^s disease
     Dosage: 600 MG, INDUCTION AT 0, 2, AND 6 WEEKS, MAINTENANCE EVERY 8 WEEKS
     Route: 042
     Dates: start: 20210414, end: 20210720
  2. INFLECTRA [Suspect]
     Active Substance: INFLIXIMAB-DYYB
     Dosage: 600 MG, INDUCTION AT 0, 2, AND 6 WEEKS, MAINTENANCE EVERY 8 WEEKS
     Route: 042
     Dates: start: 20210504
  3. INFLECTRA [Suspect]
     Active Substance: INFLIXIMAB-DYYB
     Dosage: 600 MG, INDUCTION AT 0, 2, AND 6 WEEKS, MAINTENANCE EVERY 8 WEEKS
     Route: 042
     Dates: start: 20210525
  4. INFLECTRA [Suspect]
     Active Substance: INFLIXIMAB-DYYB
     Dosage: 600 MG, INDUCTION AT 0, 2, AND 6 WEEKS, MAINTENANCE EVERY 8 WEEKS
     Route: 042
     Dates: start: 20210720, end: 20210720
  5. INFLECTRA [Suspect]
     Active Substance: INFLIXIMAB-DYYB
     Dosage: 600 MG, INDUCTION AT 0, 2, AND 6 WEEKS, MAINTENANCE EVERY 8 WEEKS
     Route: 042
     Dates: start: 20210901
  6. INFLECTRA [Suspect]
     Active Substance: INFLIXIMAB-DYYB
     Dosage: 600 MG, INDUCTION AT 0, 2, AND 6 WEEKS, MAINTENANCE EVERY 8 WEEKS
     Route: 042
     Dates: start: 20210915
  7. INFLECTRA [Suspect]
     Active Substance: INFLIXIMAB-DYYB
     Dosage: 600 MG, INDUCTION AT 0, 2, AND 6 WEEKS, MAINTENANCE EVERY 8 WEEKS
     Route: 042
     Dates: start: 20211012
  8. INFLECTRA [Suspect]
     Active Substance: INFLIXIMAB-DYYB
     Dosage: 600 MG, INDUCTION AT 0, 2, AND 6 WEEKS, MAINTENANCE EVERY 8 WEEKS
     Route: 042
     Dates: start: 20211109, end: 20211109
  9. INFLECTRA [Suspect]
     Active Substance: INFLIXIMAB-DYYB
     Dosage: 600 MG, INDUCTION AT 0, 2, AND 6 WEEKS, MAINTENANCE EVERY 8 WEEKS
     Route: 042
     Dates: start: 20211207
  10. INFLECTRA [Suspect]
     Active Substance: INFLIXIMAB-DYYB
     Dosage: 600 MG, EVERY 4 WEEKS
     Route: 042
     Dates: start: 20220106
  11. INFLECTRA [Suspect]
     Active Substance: INFLIXIMAB-DYYB
     Dosage: 600 MG, EVERY 4 WEEKS
     Route: 042
     Dates: start: 20220106
  12. INFLECTRA [Suspect]
     Active Substance: INFLIXIMAB-DYYB
     Dosage: 600 MG, EVERY 4 WEEKS
     Route: 042
     Dates: start: 20220209
  13. INFLECTRA [Suspect]
     Active Substance: INFLIXIMAB-DYYB
     Dosage: 600 MG, EVERY 4 WEEKS
     Route: 042
     Dates: start: 20220209
  14. INFLECTRA [Suspect]
     Active Substance: INFLIXIMAB-DYYB
     Dosage: 600 MG, EVERY 4 WEEKS
     Route: 042
     Dates: start: 20220310
  15. INFLECTRA [Suspect]
     Active Substance: INFLIXIMAB-DYYB
     Dosage: 600 MG, EVERY 4 WEEKS
     Route: 042
     Dates: start: 20220413
  16. INFLECTRA [Suspect]
     Active Substance: INFLIXIMAB-DYYB
     Dosage: 600 MG, EVERY 4 WEEKS
     Route: 042
     Dates: start: 20220505
  17. INFLECTRA [Suspect]
     Active Substance: INFLIXIMAB-DYYB
     Dosage: 600 MG, EVERY 4 WEEKS
     Route: 042
     Dates: start: 20220602
  18. INFLECTRA [Suspect]
     Active Substance: INFLIXIMAB-DYYB
     Dosage: 600 MG, EVERY 4 WEEKS
     Route: 042
     Dates: start: 20220707
  19. INFLECTRA [Suspect]
     Active Substance: INFLIXIMAB-DYYB
     Dosage: 600 MG, EVERY 4 WEEKS
     Route: 042
     Dates: start: 20220817
  20. INFLECTRA [Suspect]
     Active Substance: INFLIXIMAB-DYYB
     Dosage: 600 MG, EVERY 4 WEEKS
     Route: 042
     Dates: start: 20220920
  21. INFLECTRA [Suspect]
     Active Substance: INFLIXIMAB-DYYB
     Dosage: 600 MG, EVERY 4 WEEKS
     Route: 042
     Dates: start: 20221110
  22. INFLECTRA [Suspect]
     Active Substance: INFLIXIMAB-DYYB
     Dosage: 600 MG RELOAD: AT 0, 2 AND 6 WEEKS THEN Q 4 WEEKS
     Route: 042
     Dates: start: 20230124
  23. INFLECTRA [Suspect]
     Active Substance: INFLIXIMAB-DYYB
     Dosage: 600 MG RELOAD: AT 0, 2 AND 6 WEEKS THEN Q 4 WEEKS
     Route: 042
     Dates: start: 20230207
  24. INFLECTRA [Suspect]
     Active Substance: INFLIXIMAB-DYYB
     Dosage: 600 MG RELOAD: AT 0, 2 AND 6 WEEKS THEN Q 4 WEEKS
     Route: 042
     Dates: start: 20230302
  25. INFLECTRA [Suspect]
     Active Substance: INFLIXIMAB-DYYB
     Dosage: 600 MG, EVERY 4 WEEKS.
     Route: 042
     Dates: start: 20230413
  26. INFLECTRA [Suspect]
     Active Substance: INFLIXIMAB-DYYB
     Dosage: 600 MG AFTER 6 WEEK (EVERY 4 WEEKS)
     Route: 042
     Dates: start: 20230525
  27. INFLECTRA [Suspect]
     Active Substance: INFLIXIMAB-DYYB
     Dosage: 600 MG 12 WEEKS AND 5 DAYS AFTER LAST TREATMENT (WHICH TOOK PLACE ON 25MAY2023)
     Route: 042
     Dates: start: 20230822
  28. INFLECTRA [Suspect]
     Active Substance: INFLIXIMAB-DYYB
     Dosage: 600 MG, EVERY 4 WEEKS
     Route: 042
     Dates: start: 20231017
  29. OZEMPIC [Concomitant]
     Active Substance: SEMAGLUTIDE
  30. ACETAMINOPHEN [Concomitant]
     Active Substance: ACETAMINOPHEN
     Indication: Premedication
     Dosage: 650 MG
     Route: 048
     Dates: start: 20231017, end: 20231017
  31. DIPHENHYDRAMINE [Concomitant]
     Active Substance: DIPHENHYDRAMINE
     Indication: Premedication
     Dosage: 50 MG
     Route: 042
     Dates: start: 20231017, end: 20231017
  32. HYDROCORTISONE [Concomitant]
     Active Substance: HYDROCORTISONE
     Indication: Premedication
     Dosage: 100 MG
     Route: 042
     Dates: start: 20231017, end: 20231017

REACTIONS (50)
  - Pulmonary cavitation [Unknown]
  - Dyspnoea [Unknown]
  - Pneumonia [Unknown]
  - Pulmonary embolism [Unknown]
  - Clostridium difficile colitis [Recovering/Resolving]
  - Anal abscess [Recovered/Resolved]
  - Pulmonary oedema [Not Recovered/Not Resolved]
  - Humerus fracture [Not Recovered/Not Resolved]
  - Shoulder fracture [Recovering/Resolving]
  - Foot fracture [Unknown]
  - Weight increased [Unknown]
  - Pulmonary mass [Not Recovered/Not Resolved]
  - Pulmonary fibrosis [Unknown]
  - Fall [Recovering/Resolving]
  - Joint injury [Not Recovered/Not Resolved]
  - Rib fracture [Unknown]
  - Upper limb fracture [Recovering/Resolving]
  - Condition aggravated [Not Recovered/Not Resolved]
  - Pain [Not Recovered/Not Resolved]
  - Localised infection [Not Recovered/Not Resolved]
  - Sepsis [Recovered/Resolved]
  - Joint range of motion decreased [Recovering/Resolving]
  - Illness [Not Recovered/Not Resolved]
  - Aphthous ulcer [Not Recovered/Not Resolved]
  - Erythema nodosum [Recovered/Resolved]
  - Mouth ulceration [Recovered/Resolved]
  - Rhinorrhoea [Unknown]
  - Anal fissure [Recovered/Resolved]
  - Nasal congestion [Unknown]
  - Road traffic accident [Unknown]
  - Fistula [Recovered/Resolved]
  - Vomiting [Not Recovered/Not Resolved]
  - COVID-19 [Recovered/Resolved]
  - Arthralgia [Recovered/Resolved]
  - Infection [Not Recovered/Not Resolved]
  - Malaise [Recovering/Resolving]
  - Cough [Unknown]
  - Pyrexia [Not Recovered/Not Resolved]
  - Anaemia [Not Recovered/Not Resolved]
  - Gastroenteritis viral [Not Recovered/Not Resolved]
  - Skin laceration [Unknown]
  - Concussion [Unknown]
  - Mouth ulceration [Unknown]
  - Respiratory disorder [Unknown]
  - Oxygen saturation decreased [Unknown]
  - Arthralgia [Unknown]
  - Inappropriate schedule of product administration [Unknown]
  - Intentional product use issue [Unknown]
  - Off label use [Unknown]
  - Off label use [Unknown]

NARRATIVE: CASE EVENT DATE: 20210416
